FAERS Safety Report 11106022 (Version 1)
Quarter: 2015Q2

REPORT INFORMATION
  Report Type: Report from Study
  Country: ZA (occurrence: ZA)
  Receive Date: 20150512
  Receipt Date: 20150512
  Transmission Date: 20150821
  Serious: Yes (Death)
  Sender: FDA-Public Use
  Company Number: ZA-AMGEN-ZAFSL2015044610

PATIENT
  Age: 68 Year
  Sex: Female

DRUGS (1)
  1. ARANESP [Suspect]
     Active Substance: DARBEPOETIN ALFA
     Indication: PERITONEAL DIALYSIS
     Dosage: 100 UNK, 2 TIMES/WK
     Route: 058
     Dates: start: 20131219

REACTIONS (2)
  - Blood pressure abnormal [Unknown]
  - Death [Fatal]

NARRATIVE: CASE EVENT DATE: 20150428
